FAERS Safety Report 5971759-7 (Version None)
Quarter: 2008Q4

REPORT INFORMATION
  Report Type: 
  Country: None (occurrence: None)
  Receive Date: 20081125
  Receipt Date: 20081106
  Transmission Date: 20090506
  Serious: Yes (Hospitalization)
  Sender: FDA-Public Use
  Company Number: 1-16825531

PATIENT
  Age: 38 Year
  Sex: Female

DRUGS (3)
  1. OPIUM TINCTURE 10MG/ML 4 OZ [Suspect]
     Indication: DIARRHOEA
     Dosage: 6  MG EVERY 8 HRS, ORAL
     Route: 048
     Dates: start: 20081009
  2. FLAGYL [Concomitant]
  3. ZYVOX [Concomitant]

REACTIONS (3)
  - DIARRHOEA [None]
  - DRUG INEFFECTIVE [None]
  - UNEVALUABLE EVENT [None]
